FAERS Safety Report 5084896-9 (Version None)
Quarter: 2006Q3

REPORT INFORMATION
  Report Type: 
  Country: None (occurrence: None)
  Receive Date: 20060815
  Receipt Date: 20060731
  Transmission Date: 20061208
  Serious: Yes (Hospitalization, Other)
  Sender: FDA-Public Use
  Company Number: 2006AL002058

PATIENT
  Age: 64 Year
  Sex: Female

DRUGS (4)
  1. DIGOXIN [Suspect]
  2. VERAPAMIL HYDROCHLORIDE [Suspect]
     Dosage: 80 MG
  3. SOTALOL HYDROCHLORIDE [Concomitant]
  4. WARFARIN SODIUM [Concomitant]

REACTIONS (11)
  - ABDOMINAL TENDERNESS [None]
  - ANURIA [None]
  - ATRIAL FIBRILLATION [None]
  - BRADYCARDIA [None]
  - CYANOSIS [None]
  - DRUG INTERACTION [None]
  - FEMORAL PULSE ABNORMAL [None]
  - GLASGOW COMA SCALE ABNORMAL [None]
  - HYPOTENSION [None]
  - METABOLIC ACIDOSIS [None]
  - PULSE ABSENT [None]
